FAERS Safety Report 9651449 (Version 1)
Quarter: 2013Q4

REPORT INFORMATION
  Report Type: Spontaneous
  Country: US (occurrence: US)
  Receive Date: 20131029
  Receipt Date: 20131029
  Transmission Date: 20140711
  Serious: Yes (Other)
  Sender: FDA-Public Use
  Company Number: US-DRAFT-US-2013-11895

PATIENT
  Age: 69 Year
  Sex: Male

DRUGS (2)
  1. BUSULFEX [Suspect]
     Indication: STEM CELL TRANSPLANT
     Dosage: 3.2 MG/KG, UNK
  2. FLUDARABINE PHOSPHATE [Concomitant]
     Indication: STEM CELL TRANSPLANT
     Dosage: 100 MG/M2, UNK

REACTIONS (3)
  - Graft versus host disease [Unknown]
  - Mental status changes [Unknown]
  - Cytomegalovirus infection [Unknown]
